FAERS Safety Report 20670049 (Version 2)
Quarter: 2025Q1

REPORT INFORMATION
  Report Type: Report from Study
  Country: US (occurrence: US)
  Receive Date: 20220404
  Receipt Date: 20250311
  Transmission Date: 20250408
  Serious: Yes (Hospitalization, Other)
  Sender: UCB
  Company Number: US-UCBSA-2022018265

PATIENT
  Sex: Female

DRUGS (3)
  1. LEVETIRACETAM [Suspect]
     Active Substance: LEVETIRACETAM
     Indication: Seizure
  2. VIMPAT [Suspect]
     Active Substance: LACOSAMIDE
     Indication: Seizure
     Dosage: 200 MILLIGRAM, 2X/DAY (BID)
  3. XANAX [Suspect]
     Active Substance: ALPRAZOLAM
     Indication: Anxiety

REACTIONS (7)
  - Hospitalisation [Unknown]
  - Seizure [Unknown]
  - Cerebral haemorrhage [Not Recovered/Not Resolved]
  - Anxiety [Unknown]
  - Drug withdrawal syndrome [Unknown]
  - Psychotic disorder [Unknown]
  - Speech disorder [Not Recovered/Not Resolved]
